FAERS Safety Report 7345398 (Version 3)
Quarter: 2012Q4

REPORT INFORMATION
  Report Type: 
  Country: TR (occurrence: TR)
  Receive Date: 20100406
  Receipt Date: 20120919
  Transmission Date: 20130627
  Serious: Yes (Death, Hospitalization)
  Sender: FDA-Public Use
  Company Number: PHHY2010TR20459

PATIENT
  Sex: Male

DRUGS (7)
  1. EXFORGE [Suspect]
     Route: 048
  2. ARICEPT [Concomitant]
  3. AZO-SILIN [Concomitant]
  4. BITERAL [Concomitant]
  5. DEPREKS [Concomitant]
  6. GULTRIL [Concomitant]
     Dosage: 25 mg
  7. KEPPRA [Concomitant]
     Dosage: 500 mg

REACTIONS (4)
  - Cardiac failure [Fatal]
  - Renal failure acute [Fatal]
  - Hyperglycaemia [Unknown]
  - Hypertension [Unknown]
